FAERS Safety Report 24541058 (Version 2)
Quarter: 2024Q4

REPORT INFORMATION
  Report Type: Spontaneous
  Country: US (occurrence: US)
  Receive Date: 20241023
  Receipt Date: 20241125
  Transmission Date: 20250115
  Serious: No
  Sender: PFIZER
  Company Number: US-PFIZER INC-202400281046

PATIENT
  Age: 34 Year
  Sex: Male
  Weight: 68.8 kg

DRUGS (1)
  1. ADCETRIS [Suspect]
     Active Substance: BRENTUXIMAB VEDOTIN
     Dosage: 125 MG IV Q3W
     Route: 042

REACTIONS (1)
  - Weight increased [Not Recovered/Not Resolved]
